FAERS Safety Report 7179362-0 (Version None)
Quarter: 2010Q4

REPORT INFORMATION
  Report Type: 
  Country: None (occurrence: None)
  Receive Date: 20101208
  Receipt Date: 20101126
  Transmission Date: 20110411
  Serious: Yes (Hospitalization, Other)
  Sender: FDA-Public Use
  Company Number: 018972

PATIENT
  Sex: Male
  Weight: 75.6 kg

DRUGS (5)
  1. LACOSAMIDE [Suspect]
     Indication: EPILEPSY
     Dosage: 150 MG BID ORAL
     Route: 048
     Dates: start: 20100427
  2. ACARD [Concomitant]
  3. APO-SIMVASTATIN [Concomitant]
  4. BISOCARD /00802601/ [Concomitant]
  5. AMLOZEK /00972401/ [Concomitant]

REACTIONS (1)
  - SUBCLAVIAN ARTERY STENOSIS [None]
